FAERS Safety Report 12327429 (Version 2)
Quarter: 2016Q3

REPORT INFORMATION
  Report Type: Spontaneous
  Country: US (occurrence: US)
  Receive Date: 20160503
  Receipt Date: 20160727
  Transmission Date: 20161109
  Serious: No
  Sender: FDA-Public Use
  Company Number: US-GLAXOSMITHKLINE-US2016050543

PATIENT
  Age: 29 Year
  Sex: Female

DRUGS (2)
  1. ZOFRAN [Concomitant]
     Active Substance: ONDANSETRON HYDROCHLORIDE
  2. BENLYSTA [Suspect]
     Active Substance: BELIMUMAB
     Indication: SYSTEMIC LUPUS ERYTHEMATOSUS
     Dosage: 10 MG/KG, CYC
     Route: 042
     Dates: start: 20150715, end: 20160304

REACTIONS (6)
  - Nausea [Recovered/Resolved]
  - Incorrect drug administration duration [Unknown]
  - Headache [Recovered/Resolved]
  - Migraine [Unknown]
  - Emergency care [Recovered/Resolved]
  - Therapeutic response unexpected [Unknown]
